FAERS Safety Report 23145581 (Version 1)
Quarter: 2023Q4

REPORT INFORMATION
  Report Type: Spontaneous
  Country: ES (occurrence: ES)
  Receive Date: 20231103
  Receipt Date: 20231103
  Transmission Date: 20240110
  Serious: No
  Sender: FDA-Public Use
  Company Number: ES-SCALL-2023-ES-093188

PATIENT
  Sex: Male
  Weight: 72 kg

DRUGS (2)
  1. DUTASTERIDE [Suspect]
     Active Substance: DUTASTERIDE
     Indication: Benign prostatic hyperplasia
     Dosage: 0.5 MG
     Route: 065
     Dates: start: 20230323
  2. MINOXIDIL [Concomitant]
     Active Substance: MINOXIDIL
     Route: 003
     Dates: start: 20230323

REACTIONS (2)
  - Prostatic pain [Not Recovered/Not Resolved]
  - Painful ejaculation [Not Recovered/Not Resolved]

NARRATIVE: CASE EVENT DATE: 20230508
